FAERS Safety Report 14210001 (Version 1)
Quarter: 2017Q4

REPORT INFORMATION
  Report Type: Spontaneous
  Country: US (occurrence: US)
  Receive Date: 20171121
  Receipt Date: 20171121
  Transmission Date: 20180321
  Serious: No
  Sender: FDA-Public Use
  Company Number: US-JNJFOC-20171017348

PATIENT
  Sex: Male

DRUGS (9)
  1. VITAMIN D3 [Concomitant]
     Active Substance: CHOLECALCIFEROL
     Route: 048
  2. POTASSIUM CHLORIDE. [Concomitant]
     Active Substance: POTASSIUM CHLORIDE
     Route: 048
  3. FUROSEMIDE. [Concomitant]
     Active Substance: FUROSEMIDE
     Route: 048
  4. XARELTO [Suspect]
     Active Substance: RIVAROXABAN
     Indication: PRODUCT USED FOR UNKNOWN INDICATION
     Dosage: STRENGTH 20 MG, 0.5 TABLET
     Route: 048
  5. IRON [Concomitant]
     Active Substance: IRON
     Route: 048
  6. LYRICA [Concomitant]
     Active Substance: PREGABALIN
     Route: 048
  7. PANTOPRAZOLE [Concomitant]
     Active Substance: PANTOPRAZOLE
     Route: 048
  8. CYANOCOBALAMIN. [Concomitant]
     Active Substance: CYANOCOBALAMIN
     Route: 048
  9. LOSARTAN. [Concomitant]
     Active Substance: LOSARTAN
     Route: 048

REACTIONS (12)
  - Peripheral swelling [Unknown]
  - Drug administration error [Unknown]
  - Arthralgia [Unknown]
  - Pollakiuria [Unknown]
  - Back pain [Unknown]
  - Snoring [Unknown]
  - Joint stiffness [Unknown]
  - Weight increased [Unknown]
  - Pain in extremity [Unknown]
  - Exercise tolerance decreased [Unknown]
  - Dyspnoea [Recovering/Resolving]
  - Nocturia [Unknown]
